FAERS Safety Report 8134317-4 (Version None)
Quarter: 2012Q1

REPORT INFORMATION
  Report Type: 
  Country: None (occurrence: None)
  Receive Date: 20120210
  Receipt Date: 20120130
  Transmission Date: 20120608
  Serious: Yes (Other)
  Sender: FDA-Public Use
  Company Number: 2012P1003700

PATIENT
  Age: 45 Year
  Sex: Female

DRUGS (2)
  1. HYDROXYCHLOROQUINE SULFATE [Suspect]
     Indication: CUTANEOUS LUPUS ERYTHEMATOSUS
     Dosage: 400 MG;QD
  2. PREDNISONE [Concomitant]

REACTIONS (15)
  - CONDITION AGGRAVATED [None]
  - WEIGHT DECREASED [None]
  - POSTERIOR REVERSIBLE ENCEPHALOPATHY SYNDROME [None]
  - PYREXIA [None]
  - THROMBOCYTOPENIA [None]
  - LYMPHOPENIA [None]
  - SYSTEMIC LUPUS ERYTHEMATOSUS [None]
  - HEMIANOPIA HOMONYMOUS [None]
  - CONVULSION [None]
  - VISUAL IMPAIRMENT [None]
  - CEREBRAL ISCHAEMIA [None]
  - PERICARDIAL EFFUSION [None]
  - APHASIA [None]
  - DEPRESSED LEVEL OF CONSCIOUSNESS [None]
  - HEADACHE [None]
